FAERS Safety Report 20946607 (Version 1)
Quarter: 2022Q2

REPORT INFORMATION
  Report Type: Spontaneous
  Country: US (occurrence: None)
  Receive Date: 20220609
  Receipt Date: 20220609
  Transmission Date: 20220721
  Serious: Yes (Death)
  Sender: FDA-Public Use
  Company Number: None

PATIENT
  Sex: Male

DRUGS (19)
  1. CLONAZEPAM [Suspect]
     Active Substance: CLONAZEPAM
     Indication: Product used for unknown indication
  2. CLONAZEPAM [Concomitant]
     Active Substance: CLONAZEPAM
  3. Carbamazepine ER 100mg [Concomitant]
  4. CEPHALEXIN [Concomitant]
     Active Substance: CEPHALEXIN
  5. COVID19 vaccine (Moderna) [Concomitant]
  6. ADDERALL [Concomitant]
     Active Substance: AMPHETAMINE ASPARTATE\AMPHETAMINE SULFATE\DEXTROAMPHETAMINE SACCHARATE\DEXTROAMPHETAMINE SULFATE
  7. ENOXAPARIN [Concomitant]
     Active Substance: ENOXAPARIN
  8. Fenofibrate 160mg [Concomitant]
  9. FINASTERIDE [Concomitant]
     Active Substance: FINASTERIDE
  10. GABAPENTIN [Concomitant]
     Active Substance: GABAPENTIN
  11. LISINOPRIL [Concomitant]
     Active Substance: LISINOPRIL
  12. MEKINIST [Concomitant]
     Active Substance: TRAMETINIB DIMETHYL SULFOXIDE
  13. TAFINLAR [Concomitant]
     Active Substance: DABRAFENIB MESYLATE
  14. PANTOPRAZOLE SODIUM [Concomitant]
     Active Substance: PANTOPRAZOLE SODIUM
  15. Prezcobix 800mg-150mg [Concomitant]
  16. ROSUVASTATIN [Concomitant]
     Active Substance: ROSUVASTATIN
  17. Testosterone cyp 200mg [Concomitant]
  18. TIVICAY [Concomitant]
     Active Substance: DOLUTEGRAVIR SODIUM
  19. VALACYCLOVIR HYDROCHLORIDE [Concomitant]
     Active Substance: VALACYCLOVIR HYDROCHLORIDE

REACTIONS (1)
  - Surgery [None]
